FAERS Safety Report 9663989 (Version 1)
Quarter: 2013Q4

REPORT INFORMATION
  Report Type: Spontaneous
  Country: US (occurrence: None)
  Receive Date: 20131030
  Receipt Date: 20131030
  Transmission Date: 20140711
  Serious: Yes (Disabling)
  Sender: FDA-Public Use
  Company Number: None

PATIENT
  Age: 30 Year
  Sex: Male
  Weight: 72.58 kg

DRUGS (1)
  1. FINASTERIDE 5 MG CIPLA [Suspect]
     Indication: ALOPECIA
     Route: 048
     Dates: start: 20080101, end: 20130101

REACTIONS (18)
  - Hypertension [None]
  - Heart rate increased [None]
  - Anxiety [None]
  - Panic attack [None]
  - Blood testosterone decreased [None]
  - Muscular weakness [None]
  - Muscle atrophy [None]
  - Feeling abnormal [None]
  - Weight decreased [None]
  - Decreased appetite [None]
  - Emotional disorder [None]
  - Disturbance in attention [None]
  - Confusional state [None]
  - Amnesia [None]
  - Apathy [None]
  - Depression [None]
  - Fatigue [None]
  - Libido decreased [None]
